FAERS Safety Report 20033392 (Version 1)
Quarter: 2021Q4

REPORT INFORMATION
  Report Type: Spontaneous
  Country: US (occurrence: US)
  Receive Date: 20211104
  Receipt Date: 20211104
  Transmission Date: 20220303
  Serious: Yes (Other)
  Sender: FDA-Public Use
  Company Number: US-CELGENE-USA-20211008207

PATIENT
  Age: 47 Year
  Sex: Female

DRUGS (2)
  1. AZACITIDINE [Suspect]
     Active Substance: AZACITIDINE
     Indication: Chronic myelomonocytic leukaemia
     Route: 041
  2. RUXOLITINIB [Suspect]
     Active Substance: RUXOLITINIB
     Indication: Chronic myelomonocytic leukaemia
     Route: 065

REACTIONS (1)
  - Lymphadenopathy [Unknown]
